FAERS Safety Report 21734420 (Version 1)
Quarter: 2022Q4

REPORT INFORMATION
  Report Type: Spontaneous
  Country: ES (occurrence: ES)
  Receive Date: 20221215
  Receipt Date: 20221215
  Transmission Date: 20230113
  Serious: Yes (Life-Threatening, Hospitalization, Other)
  Sender: FDA-Public Use
  Company Number: ES-MLMSERVICE-20221202-3960314-1

PATIENT
  Age: 49 Year
  Sex: Female

DRUGS (2)
  1. NAPROXEN SODIUM [Suspect]
     Active Substance: NAPROXEN SODIUM
     Indication: Suicide attempt
     Dosage: TWO EMPTY BLISTER PACKS
     Route: 065
  2. LORAZEPAM [Suspect]
     Active Substance: LORAZEPAM
     Indication: Suicide attempt
     Dosage: TWO EMPTY BLISTER PACKS
     Route: 065

REACTIONS (7)
  - Poisoning deliberate [Recovered/Resolved]
  - Peripheral ischaemia [Recovered/Resolved]
  - Renal failure [Recovered/Resolved]
  - Compartment syndrome [Recovered/Resolved]
  - Rhabdomyolysis [Recovered/Resolved]
  - Leg amputation [Unknown]
  - Metabolic acidosis [Recovered/Resolved]
